FAERS Safety Report 11400524 (Version 2)
Quarter: 2015Q4

REPORT INFORMATION
  Report Type: Spontaneous
  Country: US (occurrence: US)
  Receive Date: 20150820
  Receipt Date: 20151008
  Transmission Date: 20160304
  Serious: No
  Sender: FDA-Public Use
  Company Number: US-PFIZER INC-2015275039

PATIENT
  Age: 58 Year
  Sex: Male

DRUGS (1)
  1. NEURONTIN [Suspect]
     Active Substance: GABAPENTIN
     Indication: DIABETIC NEUROPATHY
     Dosage: UNK
     Route: 048

REACTIONS (4)
  - Product use issue [Unknown]
  - Drug hypersensitivity [Recovered/Resolved]
  - Pain in extremity [Recovered/Resolved]
  - Condition aggravated [Recovered/Resolved]
